FAERS Safety Report 19991261 (Version 1)
Quarter: 2021Q4

REPORT INFORMATION
  Report Type: Spontaneous
  Country: US (occurrence: US)
  Receive Date: 20211025
  Receipt Date: 20211025
  Transmission Date: 20220303
  Serious: No
  Sender: FDA-Public Use
  Company Number: None

PATIENT
  Age: 83 Year
  Sex: Female
  Weight: 78.75 kg

DRUGS (5)
  1. ABIRATERONE. [Suspect]
     Active Substance: ABIRATERONE ACETATE
     Indication: Prostate cancer
     Route: 048
     Dates: start: 20210820
  2. PREDNISONE [Suspect]
     Active Substance: PREDNISONE
     Indication: Prostate cancer
     Route: 048
     Dates: start: 20210819
  3. GABAPENTIN [Concomitant]
     Active Substance: GABAPENTIN
  4. LISINOPRIL [Concomitant]
     Active Substance: LISINOPRIL
  5. NIFEDIPINE [Concomitant]
     Active Substance: NIFEDIPINE

REACTIONS (1)
  - Blood urine present [None]

NARRATIVE: CASE EVENT DATE: 20211023
